FAERS Safety Report 17511728 (Version 5)
Quarter: 2022Q2

REPORT INFORMATION
  Report Type: Spontaneous
  Country: GB (occurrence: GB)
  Receive Date: 20200306
  Receipt Date: 20220411
  Transmission Date: 20220721
  Serious: Yes (Other)
  Sender: FDA-Public Use
  Company Number: None

PATIENT
  Age: 62 Year
  Sex: Male
  Weight: 75 kg

DRUGS (8)
  1. METFORMIN [Suspect]
     Active Substance: METFORMIN HYDROCHLORIDE
     Indication: Product used for unknown indication
     Dosage: UNK
     Dates: start: 20160419
  2. METFORMIN [Suspect]
     Active Substance: METFORMIN HYDROCHLORIDE
     Dosage: 1 DOSAGE FORM, QD (1 DOSAGE FORM, ONCE A DAY)
     Dates: start: 20160419, end: 20160506
  3. METFORMIN [Suspect]
     Active Substance: METFORMIN HYDROCHLORIDE
     Dosage: UNK
  4. RAMIPRIL [Suspect]
     Active Substance: RAMIPRIL
     Indication: Product used for unknown indication
     Dosage: UNK
     Dates: start: 20160506
  5. AMOROLFINE HYDROCHLORIDE [Concomitant]
     Active Substance: AMOROLFINE HYDROCHLORIDE
     Indication: Product used for unknown indication
     Dosage: APPLY AS DIRECTED
     Dates: start: 20150909, end: 20160419
  6. ASPIRIN [Concomitant]
     Active Substance: ASPIRIN
     Indication: Product used for unknown indication
     Dosage: 1 DOSAGE FORM, QD (1 DF, ONCE A DAY)
     Dates: start: 20151216
  7. FELODIPINE [Concomitant]
     Active Substance: FELODIPINE
     Indication: Product used for unknown indication
     Dosage: 1 DOSAGE FORM, QD (1 DOSAGE FORM, ONCE A DAY)
     Dates: start: 20151216
  8. METFORMIN [Concomitant]
     Active Substance: METFORMIN HYDROCHLORIDE
     Dosage: 1 DOSAGE FORM, QD
     Dates: start: 20160419, end: 20160506

REACTIONS (5)
  - Muscle spasms [Unknown]
  - Angioedema [Recovered/Resolved]
  - Diarrhoea [Recovered/Resolved]
  - Abdominal pain [Recovered/Resolved]
  - Urticaria [Unknown]

NARRATIVE: CASE EVENT DATE: 20160506
